FAERS Safety Report 4538304-4 (Version None)
Quarter: 2004Q4

REPORT INFORMATION
  Report Type: 
  Country: None (occurrence: None)
  Receive Date: 20041221
  Receipt Date: 20041213
  Transmission Date: 20050328
  Serious: No
  Sender: FDA-Public Use
  Company Number: 2004UW25313

PATIENT
  Age: 72 Year
  Sex: Female
  Weight: 66.678 kg

DRUGS (4)
  1. PULMICORT [Suspect]
     Indication: ASTHMA
     Dosage: 2 PUFF QD IH
     Route: 055
  2. PULMICORT [Suspect]
     Indication: ASTHMA
     Dosage: 2 PUFF IH
     Route: 055
  3. FORADIL [Concomitant]
  4. FELDENE [Concomitant]

REACTIONS (3)
  - CEREBROVASCULAR ACCIDENT [None]
  - HOARSENESS [None]
  - HYPERTENSION [None]
